FAERS Safety Report 6421867-1 (Version None)
Quarter: 2009Q4

REPORT INFORMATION
  Report Type: 
  Country: None (occurrence: None)
  Receive Date: 20091029
  Receipt Date: 20091029
  Transmission Date: 20100525
  Serious: Yes (Life-Threatening, Hospitalization, Other)
  Sender: FDA-Public Use
  Company Number: None

PATIENT
  Age: 41 Year
  Sex: Female
  Weight: 73.0291 kg

DRUGS (13)
  1. RECLAST [Suspect]
     Indication: OSTEOPOROSIS
     Dosage: 5 MG YEARLY IV
     Route: 042
     Dates: start: 20091015, end: 20091015
  2. NORVASC [Concomitant]
  3. LIPITOR [Concomitant]
  4. ERGOCALCIFEROL [Concomitant]
  5. ELOCON [Concomitant]
  6. PLAQUENIL [Concomitant]
  7. ATENOLOL [Concomitant]
  8. NEXIUM [Concomitant]
  9. PREDNISONE [Concomitant]
  10. CALCIUM CARBONATE [Concomitant]
  11. MYFORTIC [Concomitant]
  12. LASIX [Concomitant]
  13. VASOTEC [Concomitant]

REACTIONS (4)
  - BLOOD CALCIUM DECREASED [None]
  - HEADACHE [None]
  - PANCREATITIS ACUTE [None]
  - RENAL FAILURE ACUTE [None]
